FAERS Safety Report 14740268 (Version 1)
Quarter: 2018Q2

REPORT INFORMATION
  Report Type: Spontaneous
  Country: US (occurrence: US)
  Receive Date: 20180404
  Receipt Date: 20180404
  Transmission Date: 20180711
  Serious: No
  Sender: FDA-Public Use
  Company Number: None

PATIENT
  Age: 46 Year
  Sex: Male
  Weight: 83.6 kg

DRUGS (1)
  1. CEFTRIAXONE 2 GRAMS APOTEX [Suspect]
     Active Substance: CEFTRIAXONE
     Indication: TYPE 2 DIABETES MELLITUS
     Route: 042
     Dates: start: 20180228, end: 20180228

REACTIONS (2)
  - Hypersensitivity [None]
  - Rash [None]

NARRATIVE: CASE EVENT DATE: 20180226
